FAERS Safety Report 9665052 (Version 1)
Quarter: 2013Q4

REPORT INFORMATION
  Report Type: Spontaneous
  Country: US (occurrence: US)
  Receive Date: 20131101
  Receipt Date: 20131101
  Transmission Date: 20140711
  Serious: No
  Sender: FDA-Public Use
  Company Number: US-ASTRAZENECA-2013SE76702

PATIENT
  Age: 53 Year
  Sex: Female
  Weight: 76.2 kg

DRUGS (4)
  1. LISINOPRIL [Suspect]
     Indication: HYPERTENSION
     Route: 048
     Dates: start: 201305
  2. CRESTOR [Suspect]
     Indication: BLOOD CHOLESTEROL INCREASED
     Route: 048
     Dates: start: 201309
  3. NOVALOG [Concomitant]
     Indication: DIABETES MELLITUS
  4. LEVEMIR [Concomitant]
     Indication: DIABETES MELLITUS

REACTIONS (4)
  - Diabetes mellitus [Unknown]
  - Abdominal pain [Unknown]
  - Abdominal pain [Unknown]
  - Diarrhoea [Unknown]
